FAERS Safety Report 24351683 (Version 1)
Quarter: 2024Q3

REPORT INFORMATION
  Report Type: Spontaneous
  Country: RO (occurrence: RO)
  Receive Date: 20240923
  Receipt Date: 20240923
  Transmission Date: 20241016
  Serious: No
  Sender: ROCHE
  Company Number: RO-ROCHE-3562252

PATIENT
  Age: 60 Year
  Sex: Female

DRUGS (3)
  1. TRASTUZUMAB [Suspect]
     Active Substance: TRASTUZUMAB
     Indication: Product used for unknown indication
     Route: 065
  2. PERTUZUMAB [Suspect]
     Active Substance: PERTUZUMAB
     Indication: Product used for unknown indication
     Route: 065
  3. KADCYLA [Suspect]
     Active Substance: ADO-TRASTUZUMAB EMTANSINE
     Indication: Product used for unknown indication
     Dosage: C2- 29/JUN/2021, C3- 02/JUL/2021, C4-10/AUG/2021, C5-31/AUG/2021, C6-21/SEP/2021, C7-12/OCT/2021, C8
     Route: 065
     Dates: start: 20210608

REACTIONS (3)
  - Osteoporosis [Unknown]
  - Ill-defined disorder [Unknown]
  - Radical mastectomy [Unknown]
